FAERS Safety Report 5755269-8 (Version None)
Quarter: 2008Q2

REPORT INFORMATION
  Report Type: 
  Country: None (occurrence: None)
  Receive Date: 20080528
  Receipt Date: 20080515
  Transmission Date: 20081010
  Serious: Yes (Death, Hospitalization)
  Sender: FDA-Public Use
  Company Number: E2020-02750-SPO-JP

PATIENT
  Age: 71 Year
  Sex: Male

DRUGS (3)
  1. ARICEPT [Suspect]
     Indication: DEMENTIA ALZHEIMER'S TYPE
     Dosage: 3 MG, 1 IN 1 D, ORAL
     Route: 048
     Dates: start: 20080423, end: 20080430
  2. RISPERDAL [Concomitant]
  3. HALCION [Concomitant]

REACTIONS (8)
  - ALTERED STATE OF CONSCIOUSNESS [None]
  - ANOREXIA [None]
  - BALANCE DISORDER [None]
  - GENERAL PHYSICAL CONDITION ABNORMAL [None]
  - INSOMNIA [None]
  - MOVEMENT DISORDER [None]
  - PARALYSIS [None]
  - PNEUMONIA [None]
